FAERS Safety Report 12405354 (Version 1)
Quarter: 2016Q2

REPORT INFORMATION
  Report Type: Report from Study
  Country: JP (occurrence: JP)
  Receive Date: 20160525
  Receipt Date: 20160525
  Transmission Date: 20160815
  Serious: Yes (Death, Other)
  Sender: FDA-Public Use
  Company Number: JP-GILEAD-2016-0214794

PATIENT
  Age: 3 Year
  Sex: Male
  Weight: 12 kg

DRUGS (6)
  1. AMBRISENTAN [Suspect]
     Active Substance: AMBRISENTAN
     Dosage: 1.2 MG, QD
     Route: 048
     Dates: start: 20140217, end: 20140408
  2. WARFARIN (JAPANESE TRADENAME) [Concomitant]
     Dosage: UNK
  3. ARTIST [Concomitant]
     Active Substance: CARVEDILOL
     Dosage: UNK
  4. AMBRISENTAN [Suspect]
     Active Substance: AMBRISENTAN
     Indication: CARDIAC OPERATION
     Dosage: 0.6 MG, QD
     Route: 048
     Dates: start: 20140120, end: 20140216
  5. ASPIRIN. [Concomitant]
     Active Substance: ASPIRIN
     Dosage: UNK
  6. BLOPRESS [Concomitant]
     Active Substance: CANDESARTAN CILEXETIL
     Dosage: UNK

REACTIONS (4)
  - Peritonitis [Not Recovered/Not Resolved]
  - Blood bilirubin increased [Not Recovered/Not Resolved]
  - Off label use [Not Recovered/Not Resolved]
  - Death [Fatal]

NARRATIVE: CASE EVENT DATE: 20140120
